FAERS Safety Report 7903924-3 (Version None)
Quarter: 2011Q4

REPORT INFORMATION
  Report Type: 
  Country: None (occurrence: None)
  Receive Date: 20111109
  Receipt Date: 20111107
  Transmission Date: 20120403
  Serious: Yes (Other)
  Sender: FDA-Public Use
  Company Number: US-CEPHALON-2011005567

PATIENT
  Age: 70 Year
  Sex: Male

DRUGS (4)
  1. TREANDA [Suspect]
     Indication: MANTLE CELL LYMPHOMA
     Route: 042
     Dates: start: 20100101, end: 20100101
  2. RITUXIMAB [Concomitant]
  3. PREDNISONE [Suspect]
  4. ALLOPURINOL [Concomitant]

REACTIONS (2)
  - INTERSTITIAL LUNG DISEASE [None]
  - URTICARIA [None]
